FAERS Safety Report 10200235 (Version 2)
Quarter: 2014Q2

REPORT INFORMATION
  Report Type: Spontaneous
  Country: US (occurrence: US)
  Receive Date: 20140527
  Receipt Date: 20140527
  Transmission Date: 20141212
  Serious: Yes (Hospitalization, Other)
  Sender: FDA-Public Use
  Company Number: US-ASTRAZENECA-2011SE48946

PATIENT
  Age: 60 Year
  Sex: Male
  Weight: 116.6 kg

DRUGS (12)
  1. NEXIUM [Suspect]
     Indication: GASTROOESOPHAGEAL REFLUX DISEASE
     Route: 048
     Dates: start: 2001
  2. METOPROLOL [Suspect]
     Indication: BLOOD PRESSURE ABNORMAL
     Route: 065
     Dates: start: 2012
  3. GABAPENTIN [Concomitant]
     Indication: NEUROPATHY PERIPHERAL
     Route: 048
     Dates: start: 2008
  4. OXYCODONE [Concomitant]
     Indication: BACK PAIN
     Dosage: 15MG 6/DAY PRN
     Route: 048
     Dates: start: 2012
  5. VENLAFAXINE [Concomitant]
     Indication: PAIN
     Dosage: 75MG 150MG BID
     Route: 048
     Dates: start: 2013
  6. CLONIDINE [Concomitant]
     Indication: NIGHT SWEATS
     Route: 048
     Dates: start: 2013
  7. CLONIDINE [Concomitant]
     Indication: BLOOD PRESSURE ABNORMAL
     Route: 048
     Dates: start: 2013
  8. LEVOTHYROXINE [Concomitant]
     Indication: HYPOTHYROIDISM
     Dosage: 75MCG DAILY
     Route: 048
     Dates: start: 201401
  9. CEPTUS [Concomitant]
     Indication: BLOOD TESTOSTERONE DECREASED
     Dosage: 1.5CC EVERY 2 WEEKS
     Dates: start: 201402
  10. CIALIS [Concomitant]
     Indication: BLADDER DISORDER
     Route: 048
     Dates: start: 201402
  11. CIALIS [Concomitant]
     Indication: PROSTATIC DISORDER
     Route: 048
     Dates: start: 201402
  12. ARTIFICIAL TEARS [Concomitant]
     Indication: DRY EYE
     Dosage: PRN
     Route: 050
     Dates: start: 201310

REACTIONS (18)
  - Dyskinesia [Unknown]
  - Intervertebral disc protrusion [Recovered/Resolved with Sequelae]
  - Injury [Recovered/Resolved with Sequelae]
  - Cataract [Recovered/Resolved]
  - Spinal cord injury [Not Recovered/Not Resolved]
  - Pollakiuria [Recovering/Resolving]
  - Asthenia [Not Recovered/Not Resolved]
  - Night sweats [Recovered/Resolved]
  - Blood testosterone decreased [Recovered/Resolved]
  - Pain [Not Recovered/Not Resolved]
  - Panic reaction [Unknown]
  - Malaise [Unknown]
  - Dry mouth [Unknown]
  - Diarrhoea [Unknown]
  - Nausea [Unknown]
  - Malaise [Not Recovered/Not Resolved]
  - Malaise [Not Recovered/Not Resolved]
  - Drug dose omission [Unknown]
